FAERS Safety Report 9380355 (Version 5)
Quarter: 2013Q3

REPORT INFORMATION
  Report Type: Spontaneous
  Country: JP (occurrence: JP)
  Receive Date: 20130702
  Receipt Date: 20130930
  Transmission Date: 20140515
  Serious: Yes (Death, Other)
  Sender: FDA-Public Use
  Company Number: JP-GLAXOSMITHKLINE-B0904526A

PATIENT
  Age: 34 Year
  Sex: Male
  Weight: 58 kg

DRUGS (4)
  1. ALKERAN [Suspect]
     Indication: ALLOGENIC BONE MARROW TRANSPLANTATION THERAPY
     Dosage: 120MG PER DAY
     Route: 042
     Dates: start: 20130603, end: 20130603
  2. FUNGUARD [Concomitant]
     Indication: INFECTION
     Dosage: 150MG PER DAY
     Route: 042
     Dates: start: 20130601, end: 20130620
  3. TAKEPRON [Concomitant]
     Indication: PROPHYLAXIS
     Dosage: 30MG TWICE PER DAY
     Route: 042
     Dates: start: 20130601, end: 20130620
  4. ZOVIRAX [Concomitant]
     Indication: INFECTION PROPHYLAXIS
     Dosage: 250MG PER DAY
     Route: 042
     Dates: start: 20130601, end: 20130623

REACTIONS (5)
  - Toxic epidermal necrolysis [Unknown]
  - Engraft failure [Fatal]
  - Sepsis [Fatal]
  - Intestinal ulcer [Unknown]
  - Pulmonary mass [Unknown]
